FAERS Safety Report 5495290-0 (Version None)
Quarter: 2007Q4

REPORT INFORMATION
  Report Type: 
  Country: None (occurrence: None)
  Receive Date: 20071023
  Receipt Date: 20071005
  Transmission Date: 20080405
  Serious: Yes (Other)
  Sender: FDA-Public Use
  Company Number: US-DEXPHARM-2007821

PATIENT
  Age: 41 Year
  Sex: Female

DRUGS (1)
  1. PERIOCHIP [Suspect]
     Indication: PERIODONTITIS
     Dosage: ^5 CHIPS^ (2.5 MG MILLIGRAM(S)) TOPICAL
     Route: 061
     Dates: start: 20071003

REACTIONS (5)
  - DRUG HYPERSENSITIVITY [None]
  - HYPOACUSIS [None]
  - ILL-DEFINED DISORDER [None]
  - PRURITUS [None]
  - URTICARIA [None]
